FAERS Safety Report 5446191-5 (Version None)
Quarter: 2007Q3

REPORT INFORMATION
  Report Type: 
  Country: None (occurrence: None)
  Receive Date: 20070907
  Receipt Date: 20070831
  Transmission Date: 20080115
  Serious: Yes (Other)
  Sender: FDA-Public Use
  Company Number: HQWYE011505SEP07

PATIENT
  Sex: Female

DRUGS (1)
  1. INDERAL [Suspect]
     Dosage: 40 MG, FREQUENCY UNSPECIFIED
     Route: 048
     Dates: start: 20070701, end: 20070101

REACTIONS (5)
  - BLOOD GLUCOSE DECREASED [None]
  - BLOOD PRESSURE INCREASED [None]
  - DRUG INEFFECTIVE [None]
  - PERIPHERAL COLDNESS [None]
  - VISUAL ACUITY REDUCED [None]
